FAERS Safety Report 9547243 (Version 1)
Quarter: 2013Q3

REPORT INFORMATION
  Report Type: Spontaneous
  Country: US (occurrence: None)
  Receive Date: 20130919
  Receipt Date: 20130919
  Transmission Date: 20140515
  Serious: Yes (Death)
  Sender: FDA-Public Use
  Company Number: SYM-2013-10708

PATIENT
  Age: 69 Year
  Sex: Female

DRUGS (1)
  1. XENAZINE [Suspect]
     Indication: NEUROMYOPATHY
     Dosage: 12.5MG, 4 IN 1 D, ORAL
     Route: 048
     Dates: start: 20110422

REACTIONS (1)
  - Death [None]
